FAERS Safety Report 7853571-7 (Version None)
Quarter: 2011Q4

REPORT INFORMATION
  Report Type: 
  Country: None (occurrence: None)
  Receive Date: 20111026
  Receipt Date: 20111020
  Transmission Date: 20120403
  Serious: Yes (Hospitalization)
  Sender: FDA-Public Use
  Company Number: JP-ABBOTT-11P-087-0867839-00

PATIENT
  Age: 62 Year
  Sex: Male
  Weight: 57.1 kg

DRUGS (6)
  1. ENBREL [Suspect]
     Indication: RHEUMATOID ARTHRITIS
     Route: 058
     Dates: start: 20100629, end: 20101102
  2. PREDNISOLONE [Concomitant]
     Indication: PRODUCT USED FOR UNKNOWN INDICATION
  3. RIMATIL [Suspect]
     Indication: RHEUMATOID ARTHRITIS
     Dates: end: 20101102
  4. HUMIRA [Suspect]
     Indication: RHEUMATOID ARTHRITIS
     Route: 058
     Dates: start: 20081127, end: 20100628
  5. LOXONIN [Concomitant]
     Indication: PRODUCT USED FOR UNKNOWN INDICATION
  6. CORTICOSTEROIDS [Concomitant]
     Indication: PRODUCT USED FOR UNKNOWN INDICATION

REACTIONS (6)
  - LOSS OF CONSCIOUSNESS [None]
  - PANCYTOPENIA [None]
  - INJURY [None]
  - APLASTIC ANAEMIA [None]
  - PYREXIA [None]
  - BIRTH MARK [None]
